FAERS Safety Report 22332180 (Version 3)
Quarter: 2023Q2

REPORT INFORMATION
  Report Type: Report from Study
  Country: MX (occurrence: MX)
  Receive Date: 20230517
  Receipt Date: 20230525
  Transmission Date: 20230721
  Serious: Yes (Other)
  Sender: FDA-Public Use
  Company Number: MX-UCBSA-2023011095

PATIENT
  Age: 26 Year
  Sex: Female
  Weight: 47.5 kg

DRUGS (11)
  1. BRIVARACETAM [Suspect]
     Active Substance: BRIVARACETAM
     Indication: Epilepsy
     Dosage: 25 MILLIGRAM, 2X/DAY (BID) (1/4 TABLET OF 100 MG TABLET)
     Route: 048
     Dates: start: 202102
  2. BRIVARACETAM [Suspect]
     Active Substance: BRIVARACETAM
     Dosage: 100 MILLIGRAM
     Dates: start: 20220522, end: 20220522
  3. BRIVARACETAM [Suspect]
     Active Substance: BRIVARACETAM
     Dosage: 1/8 OF 100 MG
     Dates: start: 20230502
  4. BRIVARACETAM [Suspect]
     Active Substance: BRIVARACETAM
     Dosage: 1/4 TABLET OF 100 MG
  5. BRIVARACETAM [Suspect]
     Active Substance: BRIVARACETAM
     Dosage: 1/8 OF BRIVIACT
  6. KEPPRA [Suspect]
     Active Substance: LEVETIRACETAM
     Indication: Epilepsy
     Dosage: 500 MILLIGRAM, 2X/12 HOURS
     Route: 048
  7. KEPPRA [Suspect]
     Active Substance: LEVETIRACETAM
     Dosage: 1 GRAM, 2X/DAY (BID)
  8. KEPPRA [Suspect]
     Active Substance: LEVETIRACETAM
     Dosage: 1 G OF KEPPRA (500 MG IN THE MORNING AND 500 MG AT NIGHT)
  9. EPAMIN [PHENYTOIN SODIUM] [Concomitant]
     Indication: Epilepsy
     Dosage: 1 TABLET EVERY 12 HOURS
     Route: 048
  10. FERROUS FUMARATE [Concomitant]
     Active Substance: FERROUS FUMARATE
     Indication: Pregnancy
     Dosage: UNK
  11. LAMOTRIGINE [Concomitant]
     Active Substance: LAMOTRIGINE
     Indication: Product used for unknown indication
     Dosage: 12.5 MILLIGRAM, 2X/12 HOURS

REACTIONS (10)
  - Epilepsy [Recovered/Resolved]
  - Caesarean section [Recovered/Resolved]
  - Palpitations [Recovered/Resolved]
  - Lactation insufficiency [Recovered/Resolved]
  - Blood pressure decreased [Unknown]
  - Tachycardia [Unknown]
  - Maternal exposure during pregnancy [Unknown]
  - Maternal exposure before pregnancy [Unknown]
  - Maternal exposure during breast feeding [Unknown]
  - Incorrect dose administered [Unknown]

NARRATIVE: CASE EVENT DATE: 20220701
